FAERS Safety Report 14376100 (Version 1)
Quarter: 2018Q1

REPORT INFORMATION
  Report Type: Spontaneous
  Country: US (occurrence: US)
  Receive Date: 20180111
  Receipt Date: 20180111
  Transmission Date: 20180509
  Serious: No
  Sender: FDA-Public Use
  Company Number: US-009507513-1712USA008037

PATIENT
  Age: 69 Year
  Sex: Female

DRUGS (8)
  1. BELSOMRA [Suspect]
     Active Substance: SUVOREXANT
     Dosage: UNK
     Route: 048
     Dates: start: 201712
  2. TOPROL XL [Concomitant]
     Active Substance: METOPROLOL SUCCINATE
  3. PRINIVIL [Concomitant]
     Active Substance: LISINOPRIL
  4. FENTANYL. [Concomitant]
     Active Substance: FENTANYL
  5. BELSOMRA [Suspect]
     Active Substance: SUVOREXANT
     Dosage: THREE 10MG TABLETS
     Route: 048
     Dates: start: 20171213, end: 20171213
  6. ALPRAZOLAM. [Concomitant]
     Active Substance: ALPRAZOLAM
  7. LEVOTHYROXINE SODIUM. [Concomitant]
     Active Substance: LEVOTHYROXINE SODIUM
  8. BELSOMRA [Suspect]
     Active Substance: SUVOREXANT
     Indication: INSOMNIA
     Dosage: 2 DF, QD
     Route: 048
     Dates: start: 20171211, end: 20171212

REACTIONS (2)
  - Inappropriate schedule of drug administration [Unknown]
  - Drug ineffective [Unknown]

NARRATIVE: CASE EVENT DATE: 20171211
